FAERS Safety Report 7541029-4 (Version None)
Quarter: 2011Q2

REPORT INFORMATION
  Report Type: 
  Country: None (occurrence: None)
  Receive Date: 20110610
  Receipt Date: 20100629
  Transmission Date: 20111010
  Serious: No
  Sender: FDA-Public Use
  Company Number: A0867640A

PATIENT
  Age: 60 Year
  Sex: Male

DRUGS (3)
  1. BACTRIM [Concomitant]
  2. ALTABAX [Suspect]
     Route: 061
     Dates: start: 20100625
  3. INSULIN [Concomitant]

REACTIONS (3)
  - RASH [None]
  - DRUG INEFFECTIVE [None]
  - RASH PAPULAR [None]
